FAERS Safety Report 24076351 (Version 2)
Quarter: 2024Q3

REPORT INFORMATION
  Report Type: Spontaneous
  Country: US (occurrence: US)
  Receive Date: 20240711
  Receipt Date: 20240731
  Transmission Date: 20241017
  Serious: Yes (Hospitalization)
  Sender: BIOGEN
  Company Number: US-BIOGEN-2024BI01272510

PATIENT
  Age: 8 Year
  Sex: Male

DRUGS (1)
  1. SPINRAZA [Suspect]
     Active Substance: NUSINERSEN
     Indication: Spinal muscular atrophy
     Route: 050
     Dates: start: 20200717

REACTIONS (1)
  - Atelectasis [Recovered/Resolved]

NARRATIVE: CASE EVENT DATE: 20240529
